FAERS Safety Report 4701020-X (Version None)
Quarter: 2005Q2

REPORT INFORMATION
  Report Type: 
  Country: None (occurrence: None)
  Receive Date: 20050624
  Receipt Date: 20050616
  Transmission Date: 20051028
  Serious: Yes (Death)
  Sender: FDA-Public Use
  Company Number: 2005061810

PATIENT
  Age: 81 Year
  Sex: Female

DRUGS (26)
  1. CELEBREX [Suspect]
     Indication: OSTEOARTHRITIS
     Dosage: 100 MG (100 MG, 1 IN 1 D), ORAL
     Route: 048
     Dates: start: 20030530, end: 20030829
  2. PRAVACHOL [Suspect]
     Indication: ILL-DEFINED DISORDER
     Dosage: 40 MG (40 MG, 1 IN 1 D), ORAL
     Route: 048
     Dates: start: 20030901, end: 20040101
  3. DILTIAZEM HYDROCHLORIDE [Concomitant]
  4. INSULIN [Concomitant]
  5. ALL OTHER THERAPEUTIC PRODUCTS [Concomitant]
  6. MAGNESIUM OXIDE (MAGNESIUM OXIDE) [Concomitant]
  7. LASIX [Concomitant]
  8. COLACE (DOCUSATE SODIUM) [Concomitant]
  9. LEVOXYL [Concomitant]
  10. SYNTHROID [Concomitant]
  11. TOPROL-XL [Concomitant]
  12. IMDUR [Concomitant]
  13. NORVASC [Concomitant]
  14. PROTONIX [Concomitant]
  15. ACETYLSALICYLIC ACID SRT [Concomitant]
  16. HUMALOG [Concomitant]
  17. K-DUR 10 [Concomitant]
  18. SENOKOT [Concomitant]
  19. ALPHAGAN [Concomitant]
  20. LACTULOSE [Concomitant]
  21. BETOPTIC [Concomitant]
  22. OPTIGEN (GENTAMICIN SULFATE) [Concomitant]
  23. LOTRISONE [Concomitant]
  24. NITRO (GLYCERYL TRINITRATE) [Concomitant]
  25. COMPAZINE [Concomitant]
  26. ALTACE [Concomitant]

REACTIONS (6)
  - DYSLIPIDAEMIA [None]
  - HEPATIC CIRRHOSIS [None]
  - HEPATOMEGALY [None]
  - HYPERSENSITIVITY [None]
  - OEDEMA [None]
  - REFUSAL OF TREATMENT BY PATIENT [None]
